FAERS Safety Report 5988372-8 (Version None)
Quarter: 2008Q4

REPORT INFORMATION
  Report Type: 
  Country: None (occurrence: None)
  Receive Date: 20081210
  Receipt Date: 20081204
  Transmission Date: 20090506
  Serious: Yes (Other)
  Sender: FDA-Public Use
  Company Number: US-MERCK-0810USA04977

PATIENT
  Age: 18 Year
  Sex: Male
  Weight: 63 kg

DRUGS (4)
  1. IVEMEND [Suspect]
     Indication: PROPHYLAXIS OF NAUSEA AND VOMITING
     Route: 041
     Dates: start: 20081028, end: 20081028
  2. ALOXI [Concomitant]
     Route: 065
  3. DECADRON [Concomitant]
     Route: 065
  4. ANTINEOPLASTIC (UNSPECIFIED) [Suspect]
     Route: 065
     Dates: start: 20081028

REACTIONS (6)
  - CHEST DISCOMFORT [None]
  - DYSPNOEA [None]
  - FLUSHING [None]
  - NAUSEA [None]
  - PERIORBITAL OEDEMA [None]
  - THROAT TIGHTNESS [None]
